FAERS Safety Report 6938486-0 (Version None)
Quarter: 2010Q3

REPORT INFORMATION
  Report Type: 
  Country: None (occurrence: None)
  Receive Date: 20100824
  Receipt Date: 20100817
  Transmission Date: 20110219
  Serious: Yes (Death)
  Sender: FDA-Public Use
  Company Number: US-SANOFI-AVENTIS-2010SA041373

PATIENT
  Age: 68 Year
  Sex: Female
  Weight: 107.7 kg

DRUGS (11)
  1. MULTAQ [Suspect]
     Indication: ATRIAL FIBRILLATION
     Route: 048
     Dates: start: 20100706, end: 20100711
  2. ADVAIR DISKUS 100/50 [Concomitant]
  3. ZYRTEC [Concomitant]
  4. CRESTOR [Concomitant]
  5. K-DUR [Concomitant]
  6. LASIX [Concomitant]
  7. TOPROL-XL [Concomitant]
  8. PAXIL [Concomitant]
  9. SYNTHROID [Concomitant]
  10. ULTRAM [Concomitant]
  11. COUMADIN [Concomitant]
     Dosage: 5MG/7.5MG

REACTIONS (2)
  - DEATH [None]
  - GASTROINTESTINAL DISORDER [None]
